FAERS Safety Report 7242157-3 (Version None)
Quarter: 2011Q1

REPORT INFORMATION
  Report Type: 
  Country: None (occurrence: None)
  Receive Date: 20110124
  Receipt Date: 20110119
  Transmission Date: 20110831
  Serious: Yes (Death)
  Sender: FDA-Public Use
  Company Number: US-US-EMD SERONO, INC.-7037053

PATIENT
  Sex: Female
  Weight: 63 kg

DRUGS (5)
  1. DETROL LA [Concomitant]
     Dates: end: 20100501
  2. CARBAMAZEPINE [Concomitant]
     Indication: CONVULSION
     Dates: end: 20100501
  3. LEXAPRO [Concomitant]
     Dates: end: 20100501
  4. OMEPRAZOLE [Concomitant]
     Dates: end: 20100501
  5. REBIF [Suspect]
     Indication: MULTIPLE SCLEROSIS
     Route: 058
     Dates: start: 20090904, end: 20100501

REACTIONS (8)
  - CHRONIC OBSTRUCTIVE PULMONARY DISEASE [None]
  - CARDIAC ARREST [None]
  - INJECTION SITE URTICARIA [None]
  - ACUTE MYOCARDIAL INFARCTION [None]
  - HYPERTENSION [None]
  - ALCOHOL ABUSE [None]
  - INFECTION [None]
  - ARRHYTHMIA [None]
